FAERS Safety Report 5149450-9 (Version None)
Quarter: 2006Q4

REPORT INFORMATION
  Report Type: 
  Country: None (occurrence: None)
  Receive Date: 20061113
  Receipt Date: 20060123
  Transmission Date: 20070319
  Serious: No
  Sender: FDA-Public Use
  Company Number: 433305

PATIENT
  Age: 82 Year
  Sex: Female

DRUGS (14)
  1. COREG [Suspect]
     Indication: HYPERTENSION
     Dosage: 6.25MG TWICE PER DAY
     Route: 048
  2. GLIPIZIDE [Concomitant]
  3. IMDUR [Concomitant]
  4. ACIPHEX [Concomitant]
  5. SYNTHROID [Concomitant]
  6. LASIX [Concomitant]
  7. VICODIN [Concomitant]
  8. DIGOXIN [Concomitant]
  9. ZYRTEC [Concomitant]
  10. COUMADIN [Concomitant]
  11. NITROGLYCERIN [Concomitant]
  12. BENICAR [Concomitant]
  13. NPH INSULIN [Concomitant]
  14. RESTORIL [Concomitant]

REACTIONS (3)
  - BLOOD GLUCOSE INCREASED [None]
  - DYSPNOEA [None]
  - PALPITATIONS [None]
